FAERS Safety Report 11863255 (Version 1)
Quarter: 2015Q4

REPORT INFORMATION
  Report Type: Report from Study
  Country: PL (occurrence: PL)
  Receive Date: 20151223
  Receipt Date: 20151223
  Transmission Date: 20160305
  Serious: Yes (Other)
  Sender: FDA-Public Use
  Company Number: PHHY2015PL164018

PATIENT
  Age: 69 Year
  Sex: Female

DRUGS (1)
  1. TASIGNA [Suspect]
     Active Substance: NILOTINIB
     Indication: CHRONIC MYELOID LEUKAEMIA
     Dosage: 800 MG, UNK
     Route: 065
     Dates: start: 20141028

REACTIONS (3)
  - Drug intolerance [Unknown]
  - Trisomy 8 [Unknown]
  - Alanine aminotransferase increased [Unknown]
